FAERS Safety Report 9973874 (Version 1)
Quarter: 2014Q1

REPORT INFORMATION
  Report Type: Spontaneous
  Country: US (occurrence: US)
  Receive Date: 20140306
  Receipt Date: 20140306
  Transmission Date: 20141002
  Serious: No
  Sender: FDA-Public Use
  Company Number: US-MYLANLABS-2013S1029068

PATIENT
  Sex: Female

DRUGS (11)
  1. RABEPRAZOLE SODIUM DELAYED-RELEASE TABLETS [Suspect]
     Indication: GASTROOESOPHAGEAL REFLUX DISEASE
     Route: 048
     Dates: start: 201312
  2. LORATADINE [Concomitant]
  3. FLOVENT [Concomitant]
  4. ZOLOFT [Concomitant]
  5. LESCOL [Concomitant]
     Dosage: XL
  6. POTASSIUM CHLORIDE [Concomitant]
  7. ABILIFY [Concomitant]
  8. LYRICA [Concomitant]
  9. LORAZEPAM [Concomitant]
  10. MULTIVITAMIN [Concomitant]
  11. MAGNESIUM [Concomitant]

REACTIONS (4)
  - Drug effect decreased [Recovered/Resolved]
  - Gastrooesophageal reflux disease [Recovered/Resolved]
  - Insomnia [Recovered/Resolved]
  - Drug effect delayed [Recovered/Resolved]
